FAERS Safety Report 7997092-X (Version None)
Quarter: 2011Q4

REPORT INFORMATION
  Report Type: 
  Country: None (occurrence: None)
  Receive Date: 20111221
  Receipt Date: 20111213
  Transmission Date: 20120403
  Serious: Yes (Death, Hospitalization)
  Sender: FDA-Public Use
  Company Number: TW-BAXTER-2011BH037611

PATIENT
  Sex: Female

DRUGS (6)
  1. DIANEAL [Suspect]
     Indication: PERITONEAL DIALYSIS
     Route: 033
     Dates: start: 20060501
  2. EXTRANEAL [Suspect]
     Route: 033
     Dates: start: 20060501
  3. EXTRANEAL [Suspect]
     Indication: PERITONEAL DIALYSIS
     Route: 033
     Dates: start: 20060501
  4. DIANEAL [Suspect]
     Route: 033
     Dates: start: 20060501
  5. DIANEAL [Suspect]
     Indication: PERITONEAL DIALYSIS
     Route: 033
     Dates: start: 20060501
  6. DIANEAL [Suspect]
     Route: 033
     Dates: start: 20060501

REACTIONS (2)
  - GLYCOSURIA [None]
  - SEPSIS [None]
